FAERS Safety Report 10396687 (Version 2)
Quarter: 2014Q4

REPORT INFORMATION
  Report Type: Spontaneous
  Country: JP (occurrence: JP)
  Receive Date: 20140820
  Receipt Date: 20141118
  Transmission Date: 20150528
  Serious: Yes (Death, Other)
  Sender: FDA-Public Use
  Company Number: PHHY2013JP160458

PATIENT
  Age: 73 Year
  Sex: Female

DRUGS (4)
  1. PEMETREXED [Suspect]
     Active Substance: PEMETREXED
     Indication: NEOPLASM MALIGNANT
     Dosage: 500 MG/M2, UNK
     Dates: start: 20120525
  2. GEFITINIB [Suspect]
     Active Substance: GEFITINIB
     Dosage: UNK UKN, UNK
     Dates: start: 20130222
  3. CISPLATIN. [Suspect]
     Active Substance: CISPLATIN
     Indication: NEOPLASM MALIGNANT
     Dosage: 75 MG/M2, UNK
     Dates: start: 20120525
  4. ZOMETA [Suspect]
     Active Substance: ZOLEDRONIC ACID
     Indication: METASTASES TO BONE
     Dosage: 4 MG, PER 3 WEEKS
     Dates: start: 20120525

REACTIONS (11)
  - Malignant neoplasm progression [Unknown]
  - EGFR gene mutation [Unknown]
  - Metastases to liver [Unknown]
  - Metastases to central nervous system [Unknown]
  - Pathological fracture [Unknown]
  - Pericardial effusion [Unknown]
  - Death [Fatal]
  - Metastases to lung [Unknown]
  - Decreased appetite [Unknown]
  - Metastases to bone [Unknown]
  - Rash [Unknown]

NARRATIVE: CASE EVENT DATE: 20130221
